FAERS Safety Report 8954807 (Version 3)
Quarter: 2013Q1

REPORT INFORMATION
  Report Type: Report from Study
  Country: JP (occurrence: JP)
  Receive Date: 20121207
  Receipt Date: 20130301
  Transmission Date: 20140127
  Serious: Yes (Other)
  Sender: FDA-Public Use
  Company Number: JP-JNJFOC-20121202899

PATIENT
  Age: 40 Year
  Sex: Female
  Weight: 41 kg

DRUGS (19)
  1. STELARA [Suspect]
     Indication: PSORIATIC ARTHROPATHY
     Route: 058
     Dates: start: 20111011, end: 20120110
  2. STELARA [Suspect]
     Indication: PSORIATIC ARTHROPATHY
     Route: 058
     Dates: start: 20110629, end: 20110727
  3. PROGRAF [Suspect]
     Indication: PSORIATIC ARTHROPATHY
     Dosage: 1-3 MG DAILY
     Route: 048
     Dates: start: 20060314, end: 20120521
  4. ADALIMUMAB [Suspect]
     Indication: PSORIATIC ARTHROPATHY
     Dates: start: 20120327
  5. ALL OTHER THERAPEUTIC PRODUCTS [Concomitant]
     Indication: PROPHYLAXIS
     Route: 048
     Dates: start: 20110808
  6. CALONAL [Concomitant]
     Indication: PSORIATIC ARTHROPATHY
     Dosage: 400 TO 2400 MG DAILY
     Route: 048
  7. METHOTREXATE [Concomitant]
     Indication: PSORIATIC ARTHROPATHY
     Route: 048
  8. PREDNISOLONE [Concomitant]
     Indication: PSORIATIC ARTHROPATHY
     Route: 048
  9. FERROMIA [Concomitant]
     Indication: IRON DEFICIENCY ANAEMIA
  10. ROHYPNOL [Concomitant]
     Indication: INSOMNIA
     Route: 048
  11. ATARAX [Concomitant]
  12. ALFAROL [Concomitant]
     Indication: OSTEOPOROSIS
     Route: 048
     Dates: start: 20110830, end: 20120521
  13. BONALON [Concomitant]
     Route: 048
     Dates: start: 20110830
  14. PARIET [Concomitant]
     Route: 048
     Dates: start: 20110708
  15. TRAMAL [Concomitant]
     Indication: PSORIATIC ARTHROPATHY
     Route: 048
     Dates: start: 20110708
  16. NAUZELIN [Concomitant]
     Route: 048
     Dates: end: 20120521
  17. AZEPTIN [Concomitant]
     Indication: PSORIATIC ARTHROPATHY
     Dates: end: 20120521
  18. UFENAMATE [Concomitant]
     Indication: PSORIATIC ARTHROPATHY
     Route: 061
  19. BONOTEO [Concomitant]
     Indication: OSTEOPOROSIS
     Route: 048

REACTIONS (3)
  - Renal impairment [Recovered/Resolved]
  - Drug ineffective [Unknown]
  - Dehydration [Recovering/Resolving]
